FAERS Safety Report 5743622-8 (Version None)
Quarter: 2008Q2

REPORT INFORMATION
  Report Type: 
  Country: None (occurrence: None)
  Receive Date: 20080519
  Receipt Date: 20080519
  Transmission Date: 20081010
  Serious: Yes (Hospitalization)
  Sender: FDA-Public Use
  Company Number: None

PATIENT
  Sex: Male
  Weight: 84.3 kg

DRUGS (7)
  1. DASATINIB - BMS [Suspect]
     Indication: GLIOBLASTOMA
     Dosage: 100MG DAYS 1-28 PO DAILY
     Route: 048
     Dates: start: 20080514
  2. ERLOTINIB GENENTECH [Suspect]
     Indication: GLIOBLASTOMA
     Dosage: 450MG DAYS 1-28 PO DAILY
     Route: 048
     Dates: start: 20080514
  3. DILANTIN [Concomitant]
  4. KEPPRA [Concomitant]
  5. BENADRYL [Concomitant]
  6. LEVAQUIN [Concomitant]
  7. SENOKOT [Concomitant]

REACTIONS (4)
  - APHASIA [None]
  - ATAXIA [None]
  - CONFUSIONAL STATE [None]
  - DISEASE PROGRESSION [None]
